FAERS Safety Report 9036304 (Version 1)
Quarter: 2013Q1

REPORT INFORMATION
  Report Type: Spontaneous
  Country: US (occurrence: None)
  Receive Date: 20130123
  Receipt Date: 20130123
  Transmission Date: 20140127
  Serious: No
  Sender: FDA-Public Use
  Company Number: None

PATIENT
  Age: 72 Year
  Sex: Male

DRUGS (1)
  1. CARVEDILOL [Suspect]
     Indication: BLOOD PRESSURE
     Route: 048
     Dates: start: 20121111, end: 20130117

REACTIONS (1)
  - No adverse event [None]
